FAERS Safety Report 9754347 (Version 2)
Quarter: 2013Q4

REPORT INFORMATION
  Report Type: Report from Study
  Country: BR (occurrence: BR)
  Receive Date: 20131213
  Receipt Date: 20131213
  Transmission Date: 20140711
  Serious: Yes (Other)
  Sender: FDA-Public Use
  Company Number: PHHY2013BR129196

PATIENT
  Age: 55 Year
  Sex: Female

DRUGS (5)
  1. GALVUS MET [Suspect]
     Indication: TYPE 2 DIABETES MELLITUS
     Dosage: 1 DF (1000MG METF AND 50MG VILDA), DAILY AFTER LUNCH
     Route: 048
     Dates: start: 20131101
  2. ALLOPURINOL [Suspect]
     Indication: BLOOD URIC ACID ABNORMAL
     Dosage: 1 DF (300MG), DAILY
     Route: 048
  3. VASOPRIL [Suspect]
     Indication: BLOOD PRESSURE ABNORMAL
     Dosage: 1.5 DF, (1 DF (20 MG), IN THE MORNING AND HALF TABLET IN THE AFTERNOON)
     Route: 048
  4. ABLOK PLUS [Suspect]
     Indication: BLOOD PRESSURE ABNORMAL
     Dosage: 1 DF (50MG ATE AND 12.5 MG CHLOR), DAILY
     Route: 048
  5. CIPROFIBRATE [Suspect]
     Indication: BLOOD TRIGLYCERIDES ABNORMAL
     Dosage: 1 DF (100MG), DAILY
     Route: 048

REACTIONS (12)
  - Menorrhagia [Recovered/Resolved]
  - Benign ovarian tumour [Not Recovered/Not Resolved]
  - Diabetes mellitus inadequate control [Recovered/Resolved]
  - Malaise [Recovered/Resolved]
  - Sleep disorder [Recovered/Resolved]
  - Nasopharyngitis [Recovered/Resolved]
  - Local swelling [Not Recovered/Not Resolved]
  - Abdominal distension [Recovering/Resolving]
  - Hyperhidrosis [Recovered/Resolved]
  - Hypoglycaemia [Recovered/Resolved]
  - Swelling face [Not Recovered/Not Resolved]
  - Dizziness [Recovered/Resolved]
